FAERS Safety Report 8599281 (Version 3)
Quarter: 2015Q1

REPORT INFORMATION
  Report Type: Report from Study
  Country: US (occurrence: US)
  Receive Date: 20120605
  Receipt Date: 20150316
  Transmission Date: 20150721
  Serious: Yes (Death)
  Sender: FDA-Public Use
  Company Number: US-ROCHE-1074919

PATIENT
  Age: 58 Year
  Sex: Male

DRUGS (2)
  1. XELODA [Suspect]
     Active Substance: CAPECITABINE
     Indication: PANCREATIC CARCINOMA
     Dosage: PER 21 DAYS AND OFF FOR 7 DAYS
     Route: 048
  2. XELODA [Suspect]
     Active Substance: CAPECITABINE
     Dosage: FOR 21 DAYS THEN OFF FOR 7 DAYS.
     Route: 048

REACTIONS (1)
  - Death [Fatal]

NARRATIVE: CASE EVENT DATE: 20120519
